FAERS Safety Report 8616670-8 (Version None)
Quarter: 2012Q3

REPORT INFORMATION
  Report Type: 
  Country: None (occurrence: None)
  Receive Date: 20120823
  Receipt Date: 20120809
  Transmission Date: 20120928
  Serious: Yes (Hospitalization)
  Sender: FDA-Public Use
  Company Number: IT-PFIZER INC-2012207342

PATIENT
  Age: 62 Year
  Sex: Male

DRUGS (7)
  1. RAMIPRIL [Suspect]
     Indication: HYPERTENSION
     Dosage: 5 MG, UNK
     Route: 048
  2. ATORVASTATIN [Concomitant]
     Indication: DYSLIPIDAEMIA
     Dosage: UNK
  3. GLYCERYL TRINITRATE [Concomitant]
     Dosage: UNK
  4. LEVETIRACETAM [Concomitant]
     Indication: EPILEPSY
     Dosage: UNK
  5. BRILINTA [Suspect]
     Indication: THROMBOSIS PROPHYLAXIS
     Dosage: 2 DF, DAILY
     Route: 048
     Dates: start: 20120601
  6. ACETYLSALICYLIC ACID SRT [Suspect]
     Indication: CARDIOVASCULAR EVENT PROPHYLAXIS
     Dosage: 100 MG, DAILY
     Route: 048
     Dates: start: 20080101
  7. ATENOLOL [Concomitant]
     Indication: HYPERTENSION
     Dosage: UNK

REACTIONS (2)
  - GASTRIC ULCER HAEMORRHAGE [None]
  - ANAEMIA [None]
